FAERS Safety Report 15781505 (Version 1)
Quarter: 2019Q1

REPORT INFORMATION
  Report Type: Spontaneous
  Country: US (occurrence: US)
  Receive Date: 20190102
  Receipt Date: 20190102
  Transmission Date: 20190417
  Serious: No
  Sender: FDA-Public Use
  Company Number: US-ASTRAZENECA-2018SF56656

PATIENT
  Age: 25026 Day
  Sex: Male

DRUGS (1)
  1. SYMBICORT [Suspect]
     Active Substance: BUDESONIDE\FORMOTEROL FUMARATE DIHYDRATE
     Dosage: 80/4.5MCG, UNKNOWN FREQUENCY UNKNOWN
     Route: 055

REACTIONS (3)
  - Foreign body in respiratory tract [Unknown]
  - Device issue [Unknown]
  - Choking sensation [Unknown]

NARRATIVE: CASE EVENT DATE: 20181127
